FAERS Safety Report 25133635 (Version 1)
Quarter: 2025Q1

REPORT INFORMATION
  Report Type: Spontaneous
  Country: US (occurrence: US)
  Receive Date: 20250328
  Receipt Date: 20250328
  Transmission Date: 20250409
  Serious: Yes (Hospitalization)
  Sender: ALEXION PHARMACEUTICALS
  Company Number: US-AstraZeneca-CH-00835031A

PATIENT
  Age: 72 Year

DRUGS (2)
  1. BREZTRI [Interacting]
     Active Substance: BUDESONIDE\FORMOTEROL\GLYCOPYRROLATE
     Route: 065
  2. NORTRIPTYLINE HYDROCHLORIDE [Interacting]
     Active Substance: NORTRIPTYLINE HYDROCHLORIDE
     Route: 065

REACTIONS (2)
  - Blood pressure increased [Unknown]
  - Drug interaction [Unknown]
